FAERS Safety Report 6061587-9 (Version None)
Quarter: 2009Q1

REPORT INFORMATION
  Report Type: 
  Country: None (occurrence: None)
  Receive Date: 20090202
  Receipt Date: 20090128
  Transmission Date: 20090719
  Serious: Yes (Hospitalization)
  Sender: FDA-Public Use
  Company Number: US-GILEAD-2008-0019304

PATIENT
  Sex: Male
  Weight: 74.91 kg

DRUGS (13)
  1. LETAIRIS [Suspect]
     Indication: PULMONARY ARTERIAL HYPERTENSION
     Route: 048
     Dates: start: 20081117
  2. REVATIO [Concomitant]
  3. HYDROCHLOROTHIAZIDE [Concomitant]
  4. DOXAZOSIN MESYLATE [Concomitant]
  5. PREDNISONE [Concomitant]
  6. ACETYLCYSTEINE [Concomitant]
  7. GLYBURIDE [Concomitant]
  8. CRESTOR [Concomitant]
  9. LUMIGAN [Concomitant]
  10. ASPIRIN [Concomitant]
  11. CITRACAL [Concomitant]
  12. ONE A DAY [Concomitant]
  13. ASCORBIC ACID [Concomitant]

REACTIONS (2)
  - ANGINA PECTORIS [None]
  - FATIGUE [None]
